FAERS Safety Report 5084938-0 (Version None)
Quarter: 2006Q3

REPORT INFORMATION
  Report Type: 
  Country: None (occurrence: None)
  Receive Date: 20060815
  Receipt Date: 20060801
  Transmission Date: 20061208
  Serious: Yes (Hospitalization)
  Sender: FDA-Public Use
  Company Number: 2006PV017978

PATIENT
  Age: 78 Year
  Sex: Male
  Weight: 95.2554 kg

DRUGS (17)
  1. BYETTA [Suspect]
     Indication: DIABETES MELLITUS NON-INSULIN-DEPENDENT
     Dosage: 10 MCG BID SC ; 5 MCG BID SC ; 10 MCG BID SC
     Route: 058
     Dates: start: 20060723, end: 20060701
  2. BYETTA [Suspect]
     Indication: DIABETES MELLITUS NON-INSULIN-DEPENDENT
     Dosage: 10 MCG BID SC ; 5 MCG BID SC ; 10 MCG BID SC
     Route: 058
     Dates: start: 20060608, end: 20060708
  3. BYETTA [Suspect]
     Indication: DIABETES MELLITUS NON-INSULIN-DEPENDENT
     Dosage: 10 MCG BID SC ; 5 MCG BID SC ; 10 MCG BID SC
     Route: 058
     Dates: start: 20060708, end: 20060714
  4. BACLOFEN [Suspect]
     Indication: HICCUPS
     Dosage: PRN; PO
     Route: 048
     Dates: start: 20060713
  5. HYDROCODONE BITARTRATE + ACETAMINOPHEN [Suspect]
     Indication: DRUG USE FOR UNKNOWN INDICATION
     Dosage: PRN PO
     Route: 048
  6. ACTOS [Concomitant]
  7. PRAVASTATIN [Concomitant]
  8. ACEON [Concomitant]
  9. DIOVAN [Concomitant]
  10. COREG [Concomitant]
  11. FUROSEMIDE [Concomitant]
  12. AVODART [Concomitant]
  13. FLOMAX [Concomitant]
  14. CYCLOBENZAPRINE HCL [Concomitant]
  15. ALLOPURINOL [Concomitant]
  16. THYROID TAB [Concomitant]
  17. ZEGERID [Concomitant]

REACTIONS (9)
  - CONFUSIONAL STATE [None]
  - DELUSION [None]
  - DEPRESSED LEVEL OF CONSCIOUSNESS [None]
  - DRUG SCREEN POSITIVE [None]
  - HALLUCINATION [None]
  - HICCUPS [None]
  - MENTAL STATUS CHANGES [None]
  - PARAESTHESIA [None]
  - SENSORY LOSS [None]
